FAERS Safety Report 9605223 (Version 2)
Quarter: 2013Q4

REPORT INFORMATION
  Report Type: Spontaneous
  Country: US (occurrence: US)
  Receive Date: 20131008
  Receipt Date: 20131104
  Transmission Date: 20140711
  Serious: Yes (Other)
  Sender: FDA-Public Use
  Company Number: US-US-EMD SERONO, INC.-7241217

PATIENT
  Age: 54 Year
  Sex: Male

DRUGS (1)
  1. EGRIFTA [Suspect]
     Indication: PRODUCT USED FOR UNKNOWN INDICATION
     Dates: start: 200708, end: 200809

REACTIONS (3)
  - Large intestine polyp [Not Recovered/Not Resolved]
  - Colon adenoma [Unknown]
  - Malignant melanoma [Unknown]
